FAERS Safety Report 23131359 (Version 2)
Quarter: 2023Q4

REPORT INFORMATION
  Report Type: Report from Study
  Country: EG (occurrence: EG)
  Receive Date: 20231031
  Receipt Date: 20231108
  Transmission Date: 20240110
  Serious: Yes (Other)
  Sender: FDA-Public Use
  Company Number: EG-SANDOZ-SDZ2023EG048728

PATIENT
  Age: 6 Year
  Sex: Female
  Weight: 35 kg

DRUGS (2)
  1. OMNITROPE [Suspect]
     Active Substance: SOMATROPIN
     Indication: Growth hormone deficiency
     Dosage: 1 MG, QD
     Route: 058
     Dates: start: 202304
  2. CALCIUM [Concomitant]
     Active Substance: CALCIUM
     Indication: Medical diet
     Dosage: UNK, QD, FROM 3 MONTHS
     Route: 048

REACTIONS (6)
  - Injection site haemorrhage [Not Recovered/Not Resolved]
  - Injection site pain [Not Recovered/Not Resolved]
  - Fear of injection [Not Recovered/Not Resolved]
  - Incorrect dose administered [Unknown]
  - Multiple use of single-use product [Unknown]
  - Product use complaint [Unknown]

NARRATIVE: CASE EVENT DATE: 20230401
